FAERS Safety Report 23428734 (Version 1)
Quarter: 2024Q1

REPORT INFORMATION
  Report Type: Report from Study
  Country: US (occurrence: US)
  Receive Date: 20240122
  Receipt Date: 20240122
  Transmission Date: 20240410
  Serious: Yes (Other)
  Sender: FDA-Public Use
  Company Number: US-PFIZER INC-202400004386

PATIENT
  Age: 53 Year
  Sex: Female

DRUGS (4)
  1. BRAFTOVI [Suspect]
     Active Substance: ENCORAFENIB
     Dosage: BRAFTOVI 75 MG CAPSULE-TAKE 6 CAPSULES EVERY MORNING
     Dates: start: 20231223
  2. BRAFTOVI [Suspect]
     Active Substance: ENCORAFENIB
     Dosage: 6 CAPSULES EVERY MORNING
     Dates: start: 20231230
  3. MEKTOVI [Suspect]
     Active Substance: BINIMETINIB
     Dosage: MEKTOVI 15 MG TABLET-3 TABLETS TWICE DAILY AROUND 12 HOURS APART
     Dates: start: 20231223
  4. MEKTOVI [Suspect]
     Active Substance: BINIMETINIB
     Dosage: 3 TABLETS TWICE DAILY AROUND 12 HOURS APART
     Dates: start: 20231230

REACTIONS (11)
  - Faecaloma [Unknown]
  - Fatigue [Not Recovered/Not Resolved]
  - Somnolence [Unknown]
  - Dyspepsia [Not Recovered/Not Resolved]
  - Eructation [Not Recovered/Not Resolved]
  - Nervousness [Not Recovered/Not Resolved]
  - Visual impairment [Not Recovered/Not Resolved]
  - Decreased appetite [Not Recovered/Not Resolved]
  - Condition aggravated [Not Recovered/Not Resolved]
  - Sciatica [Not Recovered/Not Resolved]
  - Constipation [Not Recovered/Not Resolved]

NARRATIVE: CASE EVENT DATE: 20240108
